FAERS Safety Report 7800074-1 (Version None)
Quarter: 2011Q4

REPORT INFORMATION
  Report Type: 
  Country: None (occurrence: None)
  Receive Date: 20111006
  Receipt Date: 20110930
  Transmission Date: 20120403
  Serious: Yes (Other)
  Sender: FDA-Public Use
  Company Number: US-ROCHE-803374

PATIENT
  Sex: Female
  Weight: 71.2 kg

DRUGS (14)
  1. VITAMIN D [Concomitant]
     Route: 048
     Dates: start: 19800101
  2. LECITHIN [Concomitant]
     Route: 048
     Dates: start: 20090101
  3. PRILOSEC [Concomitant]
     Indication: PROPHYLAXIS
     Route: 048
     Dates: start: 20100301
  4. ZYRTEC [Concomitant]
     Indication: RHINITIS
     Dosage: AS NECESSARY
     Route: 048
     Dates: start: 20100310
  5. ASCORBIC ACID [Concomitant]
     Route: 048
     Dates: start: 19800101
  6. TYLENOL-500 [Concomitant]
     Indication: ARTHRALGIA
     Dosage: AS NECESSARY
     Route: 048
     Dates: start: 20100302
  7. COENZYME Q10 COMPLEX (UNK INGREDIENTS) [Concomitant]
     Route: 048
     Dates: start: 20090101
  8. MULTI-VITAMIN [Concomitant]
     Route: 048
  9. PRISTIQ [Concomitant]
     Indication: MENOPAUSAL SYMPTOMS
     Route: 048
     Dates: start: 20080201
  10. ACAI [Concomitant]
     Dosage: REPORTED AS ACAI BERRY EXTRACT
     Route: 048
     Dates: start: 20090101
  11. FISH OIL CONCENTRATE [Concomitant]
     Route: 048
     Dates: start: 20090101
  12. VEMURAFENIB [Suspect]
     Indication: MALIGNANT MELANOMA
     Dosage: LAST DOSE PRIOR TO SAE: 4 SEPTEMBER 2011, FORM: PILLS
     Route: 048
  13. LEVOTHYROXINE SODIUM [Concomitant]
     Indication: AUTOIMMUNE THYROIDITIS
     Route: 048
     Dates: start: 20100622
  14. CALCIUM CARBONATE [Concomitant]
     Route: 048
     Dates: start: 19800101

REACTIONS (1)
  - UVEITIS [None]
